FAERS Safety Report 14661357 (Version 1)
Quarter: 2018Q1

REPORT INFORMATION
  Report Type: Report from Study
  Country: US (occurrence: US)
  Receive Date: 20180320
  Receipt Date: 20180320
  Transmission Date: 20180509
  Serious: Yes (Death, Other)
  Sender: FDA-Public Use
  Company Number: US-PFIZER INC-2018110466

PATIENT
  Sex: Male

DRUGS (3)
  1. PACLITAXEL. [Suspect]
     Active Substance: PACLITAXEL
     Indication: LARYNGEAL CANCER STAGE IV
     Dosage: UNK, WEEKLY
  2. CARBOPLATIN. [Suspect]
     Active Substance: CARBOPLATIN
     Indication: LARYNGEAL CANCER STAGE IV
     Dosage: UNK UNK, WEEKLY
  3. CISPLATIN. [Suspect]
     Active Substance: CISPLATIN
     Indication: LARYNGEAL CANCER STAGE IV
     Dosage: UNK, CYCLIC (EITHER EVERY 3 WEEKS OR WEEKLY)

REACTIONS (2)
  - Death [Fatal]
  - Arterial rupture [Unknown]
